FAERS Safety Report 14953448 (Version 1)
Quarter: 2018Q2

REPORT INFORMATION
  Report Type: Report from Study
  Country: DE (occurrence: DE)
  Receive Date: 20180530
  Receipt Date: 20180530
  Transmission Date: 20180711
  Serious: Yes (Death, Hospitalization)
  Sender: FDA-Public Use
  Company Number: DE-PFIZER INC-2018217987

PATIENT
  Age: 67 Year
  Sex: Female
  Weight: 65 kg

DRUGS (19)
  1. CARBOPLATIN. [Suspect]
     Active Substance: CARBOPLATIN
     Dosage: 450 MG, EVERY 3 WEEKS
     Route: 042
     Dates: start: 20140710, end: 20140710
  2. AMLODIPINE [Concomitant]
     Active Substance: AMLODIPINE BESYLATE
     Indication: HYPERTENSION
     Route: 048
  3. PACLITAXEL. [Suspect]
     Active Substance: PACLITAXEL
     Dosage: 222 MG, EVERY 3 WEEKS
     Route: 042
     Dates: start: 20140306, end: 20140306
  4. BEVACIZUMAB. [Suspect]
     Active Substance: BEVACIZUMAB
     Dosage: 15 MG/KG, CYCLIC
     Route: 042
     Dates: start: 20140617, end: 20140617
  5. PANTOPRAZOL [Concomitant]
     Active Substance: PANTOPRAZOLE SODIUM
     Indication: DYSPEPSIA
     Dosage: 40 MG, 1X/DAY
     Route: 048
  6. L-THYROXIN [Concomitant]
     Active Substance: LEVOTHYROXINE SODIUM
     Indication: HYPERTHYROIDISM
     Dosage: 100 MG, 1X/DAY
     Route: 048
  7. SPASMEX [Concomitant]
     Indication: URGE INCONTINENCE
     Dosage: 45 MG, 1X/DAY
     Route: 048
  8. PACLITAXEL. [Suspect]
     Active Substance: PACLITAXEL
     Dosage: 297 MG, EVERY 3 WEEKS
     Route: 042
     Dates: start: 20140520, end: 20140520
  9. PACLITAXEL. [Suspect]
     Active Substance: PACLITAXEL
     Dosage: 288 MG, EVERY 3 WEEKS
     Route: 042
     Dates: start: 20140617, end: 20140617
  10. CARBOPLATIN. [Suspect]
     Active Substance: CARBOPLATIN
     Dosage: 500 MG, EVERY 3 WEEKS
     Route: 042
     Dates: start: 20140520, end: 20140520
  11. SERTRALINE [Concomitant]
     Active Substance: SERTRALINE HYDROCHLORIDE
     Indication: DEPRESSION
     Dosage: 100 MG, 1X/DAY
     Route: 048
  12. CARBOPLATIN. [Suspect]
     Active Substance: CARBOPLATIN
     Dosage: 550 MG, EVERY 3 WEEKS
     Route: 042
     Dates: start: 20140423, end: 20140423
  13. BEVACIZUMAB. [Suspect]
     Active Substance: BEVACIZUMAB
     Dosage: 1000 MG
     Route: 042
     Dates: start: 20141014, end: 20141014
  14. PACLITAXEL. [Suspect]
     Active Substance: PACLITAXEL
     Dosage: 282 MG, EVERY 3 WEEKS
     Route: 042
     Dates: start: 20140423, end: 20140423
  15. PACLITAXEL. [Suspect]
     Active Substance: PACLITAXEL
     Dosage: 290 MG, EVERY 3 WEEKS
     Route: 042
     Dates: start: 20140710, end: 20140710
  16. CARBOPLATIN. [Suspect]
     Active Substance: CARBOPLATIN
     Dosage: 300 MG, EVERY 3 WEEKS
     Route: 042
     Dates: start: 20140306, end: 20140306
  17. PACLITAXEL. [Suspect]
     Active Substance: PACLITAXEL
     Dosage: 300 MG, EVERY 3 WEEKS
     Route: 042
     Dates: start: 20140401, end: 20140401
  18. CARBOPLATIN. [Suspect]
     Active Substance: CARBOPLATIN
     Dosage: 450 MG, EVERY 3 WEEKS
     Route: 042
     Dates: start: 20140401, end: 20140401
  19. CARBOPLATIN. [Suspect]
     Active Substance: CARBOPLATIN
     Dosage: 450 MG, EVERY 3 WEEKS
     Route: 042
     Dates: start: 20140617, end: 20140617

REACTIONS (5)
  - Vomiting [Unknown]
  - Diarrhoea [Recovered/Resolved]
  - Ileus [Fatal]
  - Multiple organ dysfunction syndrome [Fatal]
  - Gastrointestinal infection [Recovered/Resolved]

NARRATIVE: CASE EVENT DATE: 20140617
